FAERS Safety Report 8381791-4 (Version None)
Quarter: 2012Q2

REPORT INFORMATION
  Report Type: 
  Country: None (occurrence: None)
  Receive Date: 20120522
  Receipt Date: 20120522
  Transmission Date: 20120825
  Serious: Yes (Other)
  Sender: FDA-Public Use
  Company Number: None

PATIENT
  Age: 66 Year
  Sex: Female
  Weight: 104.5 kg

DRUGS (2)
  1. NAPROXEN [Suspect]
     Indication: BACK PAIN
     Dosage: 500 MG TWICE A DAY ORAL
     Route: 048
     Dates: start: 20120131, end: 20120206
  2. NAPROXEN [Suspect]
     Indication: INFLAMMATION
     Dosage: 500 MG TWICE A DAY ORAL
     Route: 048
     Dates: start: 20120131, end: 20120206

REACTIONS (10)
  - MUSCLE SPASMS [None]
  - INADEQUATE ANALGESIA [None]
  - TINNITUS [None]
  - HALLUCINATION [None]
  - EYE SWELLING [None]
  - DYSPNOEA [None]
  - DIZZINESS [None]
  - NIGHTMARE [None]
  - WEIGHT INCREASED [None]
  - NASAL CONGESTION [None]
